FAERS Safety Report 4330123-7 (Version None)
Quarter: 2004Q1

REPORT INFORMATION
  Report Type: 
  Country: None (occurrence: None)
  Receive Date: 20040329
  Receipt Date: 20040129
  Transmission Date: 20041129
  Serious: No
  Sender: FDA-Public Use
  Company Number: 04P-163-0248891-00

PATIENT
  Sex: Female

DRUGS (2)
  1. HUMIRA [Suspect]
     Indication: RHEUMATOID ARTHRITIS
     Dosage: 40 MG, 1 IN 1 WK, SUBCUTANEOUS
     Route: 058
     Dates: start: 20040120, end: 20040127
  2. CIPROFLOXACIN HYDROCHLORIDE [Concomitant]

REACTIONS (3)
  - CHEST PAIN [None]
  - MEDICATION ERROR [None]
  - OVERDOSE [None]
